FAERS Safety Report 24870701 (Version 1)
Quarter: 2025Q1

REPORT INFORMATION
  Report Type: Spontaneous
  Country: LK (occurrence: LK)
  Receive Date: 20250121
  Receipt Date: 20250121
  Transmission Date: 20250408
  Serious: Yes (Hospitalization, Other)
  Sender: RANBAXY
  Company Number: LK-SUN PHARMACEUTICAL INDUSTRIES LTD-2025R1-489417

PATIENT
  Age: 2 Year
  Sex: Male

DRUGS (1)
  1. SODIUM CHLORIDE [Suspect]
     Active Substance: SODIUM CHLORIDE
     Indication: Product used for unknown indication
     Route: 065

REACTIONS (1)
  - Disease progression [Unknown]
